FAERS Safety Report 13934619 (Version 2)
Quarter: 2017Q3

REPORT INFORMATION
  Report Type: Spontaneous
  Country: AU (occurrence: AU)
  Receive Date: 20170905
  Receipt Date: 20170913
  Transmission Date: 20171127
  Serious: Yes (Death)
  Sender: FDA-Public Use
  Company Number: AU-ASTRAZENECA-2017SE89472

PATIENT
  Sex: Female

DRUGS (2)
  1. FASLODEX [Suspect]
     Active Substance: FULVESTRANT
     Indication: BREAST CANCER FEMALE
     Dosage: 250MG X 2MONTHLY INJECTION
     Route: 030
  2. PALBCICLIB [Suspect]
     Active Substance: PALBOCICLIB
     Route: 048

REACTIONS (2)
  - Off label use [Unknown]
  - Malignant neoplasm progression [Fatal]
